FAERS Safety Report 4549512-0 (Version None)
Quarter: 2005Q1

REPORT INFORMATION
  Report Type: 
  Country: None (occurrence: None)
  Receive Date: 20050106
  Receipt Date: 20041220
  Transmission Date: 20050727
  Serious: Yes (Hospitalization)
  Sender: FDA-Public Use
  Company Number: DE_041214931

PATIENT
  Age: 6 Year
  Sex: Male

DRUGS (1)
  1. CEFACLOR [Suspect]
     Indication: SINUSITIS
     Dosage: 500 MG/2 DAY
     Dates: start: 20041206

REACTIONS (4)
  - CELLULITIS [None]
  - DRUG INEFFECTIVE [None]
  - LEUKOCYTOCLASTIC VASCULITIS [None]
  - TYPE IV HYPERSENSITIVITY REACTION [None]
